FAERS Safety Report 18966321 (Version 3)
Quarter: 2021Q3

REPORT INFORMATION
  Report Type: Spontaneous
  Country: AU (occurrence: AU)
  Receive Date: 20210304
  Receipt Date: 20210714
  Transmission Date: 20211014
  Serious: Yes (Life-Threatening, Other)
  Sender: FDA-Public Use
  Company Number: AU-UCBSA-2021009239

PATIENT
  Age: 32 Year
  Sex: Male

DRUGS (2)
  1. LEVETIRACETAM. [Suspect]
     Active Substance: LEVETIRACETAM
     Dosage: 500 MILLIGRAM, 2X/DAY (BID)
  2. LEVETIRACETAM. [Suspect]
     Active Substance: LEVETIRACETAM
     Indication: PROPHYLAXIS
     Dosage: 1000 MILLIGRAM

REACTIONS (2)
  - Product use in unapproved indication [Unknown]
  - Pancytopenia [Recovered/Resolved]
